FAERS Safety Report 24390449 (Version 2)
Quarter: 2024Q4

REPORT INFORMATION
  Report Type: Spontaneous
  Country: AR (occurrence: AR)
  Receive Date: 20241003
  Receipt Date: 20241128
  Transmission Date: 20250115
  Serious: Yes (Life-Threatening)
  Sender: ROCHE
  Company Number: AR-002147023-NVSC2024AR191784

PATIENT
  Age: 68 Year
  Sex: Male
  Weight: 70 kg

DRUGS (1)
  1. XOLAIR [Suspect]
     Active Substance: OMALIZUMAB
     Indication: Urticaria
     Dosage: 150 MG, QMO
     Route: 050
     Dates: start: 20240921, end: 20240921

REACTIONS (7)
  - Skin burning sensation [Not Recovered/Not Resolved]
  - Pruritus [Not Recovered/Not Resolved]
  - Poisoning [Not Recovered/Not Resolved]
  - Feeling of despair [Not Recovered/Not Resolved]
  - Incorrect route of product administration [Unknown]
  - Condition aggravated [Unknown]
  - Heat illness [Not Recovered/Not Resolved]

NARRATIVE: CASE EVENT DATE: 20240921
